FAERS Safety Report 4724431-5 (Version None)
Quarter: 2005Q3

REPORT INFORMATION
  Report Type: 
  Country: None (occurrence: None)
  Receive Date: 20050721
  Receipt Date: 20050708
  Transmission Date: 20060218
  Serious: Yes (Other)
  Sender: FDA-Public Use
  Company Number: 2005S1000207

PATIENT
  Sex: Female

DRUGS (1)
  1. SORIATANE [Suspect]
     Dosage: PO
     Route: 048
     Dates: end: 20030101

REACTIONS (1)
  - NO ADVERSE EFFECT [None]
